FAERS Safety Report 4286955-7 (Version None)
Quarter: 2004Q1

REPORT INFORMATION
  Report Type: 
  Country: None (occurrence: None)
  Receive Date: 20040206
  Receipt Date: 20031105
  Transmission Date: 20041129
  Serious: Yes (Hospitalization)
  Sender: FDA-Public Use
  Company Number: WAES 0311FRA00008

PATIENT
  Age: 90 Year
  Sex: Male

DRUGS (1)
  1. VIOXX [Suspect]
     Route: 048
     Dates: start: 20030101, end: 20030501

REACTIONS (8)
  - CEREBROVASCULAR ACCIDENT [None]
  - DRUG ERUPTION [None]
  - DYSPHAGIA [None]
  - FACIAL PALSY [None]
  - HEMIPLEGIA [None]
  - MULTI-ORGAN FAILURE [None]
  - PNEUMONIA ASPIRATION [None]
  - SKIN ULCER [None]
